FAERS Safety Report 4610194-0 (Version None)
Quarter: 2005Q1

REPORT INFORMATION
  Report Type: 
  Country: None (occurrence: None)
  Receive Date: 20050315
  Receipt Date: 20050301
  Transmission Date: 20050727
  Serious: Yes (Hospitalization)
  Sender: FDA-Public Use
  Company Number: 2005039243

PATIENT
  Age: 64 Year
  Sex: Female

DRUGS (6)
  1. MYLANTA DOUBLE STRENGTH (MAGNESIUM HYDROXIDE, ALUMINIUM HYDROXIDE, SIM [Suspect]
     Dosage: ORAL
     Route: 048
  2. NITRAZEPAM [Concomitant]
  3. PANTOPRAZOLE SODIUM [Concomitant]
  4. IRBESARTAN [Concomitant]
  5. SIMVASTATIN [Concomitant]
  6. CLOPIDOGREL BISULFATE [Concomitant]

REACTIONS (2)
  - FEELING ABNORMAL [None]
  - THROAT IRRITATION [None]
